FAERS Safety Report 8794980 (Version 2)
Quarter: 2013Q4

REPORT INFORMATION
  Report Type: Spontaneous
  Country: US (occurrence: US)
  Receive Date: 20120918
  Receipt Date: 20131101
  Transmission Date: 20140711
  Serious: No
  Sender: FDA-Public Use
  Company Number: US-009507513-1209USA000683

PATIENT
  Sex: Female

DRUGS (2)
  1. PREGNYL [Suspect]
     Indication: OVULATION INDUCTION
     Dosage: 5000 UNITS, UNK
     Route: 030
  2. PREGNYL [Suspect]
     Dosage: 10,000 UNITS, UNK
     Route: 030

REACTIONS (2)
  - Drug ineffective [Recovered/Resolved]
  - Overdose [Unknown]
